FAERS Safety Report 25082473 (Version 3)
Quarter: 2025Q2

REPORT INFORMATION
  Report Type: Report from Study
  Country: US (occurrence: US)
  Receive Date: 20250317
  Receipt Date: 20250629
  Transmission Date: 20250716
  Serious: Yes (Hospitalization, Other)
  Sender: ABBVIE
  Company Number: US-ABBVIE-6100556

PATIENT
  Sex: Female

DRUGS (1)
  1. CREON [Suspect]
     Active Substance: PANCRELIPASE AMYLASE\PANCRELIPASE LIPASE\PANCRELIPASE PROTEASE
     Indication: Pancreatic failure
     Route: 048
     Dates: start: 20240930

REACTIONS (5)
  - Angiomyxoma [Not Recovered/Not Resolved]
  - Tooth extraction [Recovering/Resolving]
  - Nasopharyngitis [Unknown]
  - Spinal pain [Not Recovered/Not Resolved]
  - Visual impairment [Unknown]
